FAERS Safety Report 11416050 (Version 1)
Quarter: 2015Q3

REPORT INFORMATION
  Report Type: Spontaneous
  Country: US (occurrence: US)
  Receive Date: 20150825
  Receipt Date: 20150825
  Transmission Date: 20151125
  Serious: No
  Sender: FDA-Public Use
  Company Number: US-TEVA-524983USA

PATIENT
  Age: 48 Year
  Sex: Female
  Weight: 83.9 kg

DRUGS (1)
  1. FEXOFENADINE [Suspect]
     Active Substance: FEXOFENADINE\FEXOFENADINE HYDROCHLORIDE
     Indication: INCREASED UPPER AIRWAY SECRETION
     Route: 048
     Dates: start: 201411, end: 201411

REACTIONS (6)
  - Hypersensitivity [Recovered/Resolved]
  - Lacrimation increased [Recovered/Resolved]
  - Cough [Recovered/Resolved]
  - Off label use [Unknown]
  - Nasal congestion [Recovered/Resolved]
  - Rhinorrhoea [Recovered/Resolved]

NARRATIVE: CASE EVENT DATE: 201411
